FAERS Safety Report 10882180 (Version 1)
Quarter: 2015Q1

REPORT INFORMATION
  Report Type: Spontaneous
  Country: US (occurrence: None)
  Receive Date: 20150226
  Receipt Date: 20150226
  Transmission Date: 20150721
  Serious: Yes (Other)
  Sender: FDA-Public Use
  Company Number: None

PATIENT
  Age: 63 Year
  Sex: Male

DRUGS (1)
  1. SUTENT [Suspect]
     Active Substance: SUNITINIB MALATE
     Indication: RENAL CANCER
     Dosage: 3 CAPS Q DAILY FOR 4 WEEK THEN 3 WEEK OFF
     Route: 048
     Dates: start: 20101123, end: 20150131

REACTIONS (1)
  - Neuropathy peripheral [None]
